FAERS Safety Report 9965715 (Version 1)
Quarter: 2014Q1

REPORT INFORMATION
  Report Type: Report from Study
  Country: US (occurrence: US)
  Receive Date: 20140305
  Receipt Date: 20140305
  Transmission Date: 20141002
  Serious: No
  Sender: FDA-Public Use
  Company Number: US-ABBVIE-13P-163-1127278-00

PATIENT
  Age: 33 Year
  Sex: Female

DRUGS (4)
  1. HUMIRA [Suspect]
     Indication: CROHN^S DISEASE
     Dosage: FIRST DAY OF LOADING DOSE
     Dates: start: 20130728, end: 20130728
  2. HUMIRA [Suspect]
     Dosage: SECOND DAY OF LEADING DOSE
     Dates: start: 20130729
  3. 6-MP [Concomitant]
     Indication: CROHN^S DISEASE
     Dosage: 75 MG DAILY
     Route: 048
  4. PENTASA [Concomitant]
     Indication: CROHN^S DISEASE
     Route: 048

REACTIONS (1)
  - Injection site pain [Recovered/Resolved]
